FAERS Safety Report 20588046 (Version 1)
Quarter: 2022Q1

REPORT INFORMATION
  Report Type: Spontaneous
  Country: US (occurrence: US)
  Receive Date: 20220314
  Receipt Date: 20220314
  Transmission Date: 20220423
  Serious: No
  Sender: FDA-Public Use
  Company Number: US-Global Blood Therapeutics Inc-US-GBT-21-04665

PATIENT
  Age: 52 Year
  Sex: Male

DRUGS (4)
  1. OXBRYTA [Suspect]
     Active Substance: VOXELOTOR
     Indication: Sickle cell disease
     Route: 048
     Dates: start: 202110, end: 2021
  2. OXBRYTA [Suspect]
     Active Substance: VOXELOTOR
     Dosage: EVERY OTHER DAY
     Route: 048
     Dates: start: 2021, end: 2021
  3. OXBRYTA [Suspect]
     Active Substance: VOXELOTOR
     Route: 048
     Dates: start: 202112, end: 2021
  4. OXBRYTA [Suspect]
     Active Substance: VOXELOTOR
     Dosage: 1000-1500 MG
     Route: 048
     Dates: start: 2021

REACTIONS (2)
  - Chest pain [Recovered/Resolved]
  - Headache [Recovering/Resolving]

NARRATIVE: CASE EVENT DATE: 20211001
